FAERS Safety Report 10489638 (Version 2)
Quarter: 2015Q1

REPORT INFORMATION
  Report Type: Report from Study
  Country: CO (occurrence: CO)
  Receive Date: 20141002
  Receipt Date: 20150115
  Transmission Date: 20150720
  Serious: Yes (Other)
  Sender: FDA-Public Use
  Company Number: CO-ABBVIE-14K-036-1289990-00

PATIENT
  Age: 51 Year
  Sex: Female
  Weight: 64 kg

DRUGS (1)
  1. HUMIRA [Suspect]
     Active Substance: ADALIMUMAB
     Indication: RHEUMATOID ARTHRITIS
     Route: 058
     Dates: start: 20140707

REACTIONS (9)
  - Malaise [Recovering/Resolving]
  - Ear pain [Recovering/Resolving]
  - Fall [Recovering/Resolving]
  - Diarrhoea [Recovering/Resolving]
  - Vomiting [Recovering/Resolving]
  - Vertigo [Recovering/Resolving]
  - Sudden hearing loss [Recovering/Resolving]
  - Pain [Recovering/Resolving]
  - Loss of consciousness [Recovering/Resolving]

NARRATIVE: CASE EVENT DATE: 20140913
